FAERS Safety Report 9646134 (Version 3)
Quarter: 2013Q4

REPORT INFORMATION
  Report Type: Spontaneous
  Country: FR (occurrence: FR)
  Receive Date: 20131025
  Receipt Date: 20131211
  Transmission Date: 20140711
  Serious: Yes (Other)
  Sender: FDA-Public Use
  Company Number: FR-JNJFOC-20131011342

PATIENT
  Age: 45 Year
  Sex: Male
  Weight: 62 kg

DRUGS (7)
  1. XEPLION [Suspect]
     Indication: PRODUCT USED FOR UNKNOWN INDICATION
     Route: 030
     Dates: start: 20130625, end: 20130625
  2. XEPLION [Suspect]
     Indication: PRODUCT USED FOR UNKNOWN INDICATION
     Route: 030
     Dates: start: 20130725, end: 20130725
  3. XEPLION [Suspect]
     Indication: PRODUCT USED FOR UNKNOWN INDICATION
     Route: 030
     Dates: start: 20130619, end: 20130619
  4. TAHOR [Concomitant]
     Indication: BLOOD CHOLESTEROL
     Route: 048
     Dates: start: 2012
  5. SERESTA [Concomitant]
     Indication: ANXIETY
     Route: 048
     Dates: start: 2012
  6. SULFARLEM [Concomitant]
     Indication: PRODUCT USED FOR UNKNOWN INDICATION
     Route: 048
     Dates: start: 2012
  7. VALDOXAN (AGOMELATINE) [Concomitant]
     Indication: ANTIDEPRESSANT THERAPY
     Route: 048
     Dates: start: 2012

REACTIONS (8)
  - Tendonitis [Unknown]
  - Granuloma [Recovered/Resolved with Sequelae]
  - Injection site pain [Recovered/Resolved with Sequelae]
  - Erectile dysfunction [Recovering/Resolving]
  - Fatigue [Recovered/Resolved]
  - Injection site nodule [Recovered/Resolved with Sequelae]
  - Injection site induration [Recovered/Resolved with Sequelae]
  - Anxiety [Unknown]
